FAERS Safety Report 8857794 (Version 1)
Quarter: 2012Q4

REPORT INFORMATION
  Report Type: 
  Country: US (occurrence: US)
  Receive Date: 20121024
  Receipt Date: 20121024
  Transmission Date: 20130627
  Serious: No
  Sender: FDA-Public Use
  Company Number: US-009507513-1210USA009762

PATIENT
  Age: 47 Year
  Sex: Male

DRUGS (3)
  1. UNSPECIFIED INGREDIENT [Suspect]
     Indication: HYPERTENSION
     Dosage: 1 DF, qd
     Route: 048
     Dates: start: 2007
  2. METFORMIN [Suspect]
  3. GLIPIZIDE [Concomitant]

REACTIONS (1)
  - Genital infection fungal [Recovered/Resolved]
